FAERS Safety Report 20425574 (Version 1)
Quarter: 2022Q1

REPORT INFORMATION
  Report Type: Report from Study
  Country: US (occurrence: US)
  Receive Date: 20220204
  Receipt Date: 20220204
  Transmission Date: 20220423
  Serious: No
  Sender: FDA-Public Use
  Company Number: US-EXELIXIS-CABO-21039642

PATIENT
  Age: 48 Year
  Sex: Male

DRUGS (3)
  1. CABOMETYX [Suspect]
     Active Substance: CABOZANTINIB S-MALATE
     Indication: Renal cancer
     Dosage: 40 MG, QD
     Route: 048
     Dates: start: 202104
  2. CABOMETYX [Suspect]
     Active Substance: CABOZANTINIB S-MALATE
     Dosage: 40 MG, QD
     Route: 048
  3. INLYTA [Concomitant]
     Active Substance: AXITINIB

REACTIONS (4)
  - Glossodynia [Recovering/Resolving]
  - Nausea [Unknown]
  - Pain in extremity [Recovering/Resolving]
  - Protein urine present [Unknown]

NARRATIVE: CASE EVENT DATE: 20210416
